FAERS Safety Report 25641706 (Version 1)
Quarter: 2025Q3

REPORT INFORMATION
  Report Type: Spontaneous
  Country: EU (occurrence: EU)
  Receive Date: 20250804
  Receipt Date: 20250804
  Transmission Date: 20251021
  Serious: Yes (Other)
  Sender: DAIICHI
  Company Number: EU-DSJP-DS-2025-156593-AT

PATIENT
  Age: 76 Year
  Sex: Female

DRUGS (1)
  1. EDOXABAN TOSYLATE [Suspect]
     Active Substance: EDOXABAN TOSYLATE
     Indication: Product used for unknown indication
     Route: 065
     Dates: start: 20230103, end: 2025

REACTIONS (1)
  - Atrial thrombosis [Unknown]

NARRATIVE: CASE EVENT DATE: 20250625
